FAERS Safety Report 6919695-3 (Version None)
Quarter: 2010Q3

REPORT INFORMATION
  Report Type: 
  Country: None (occurrence: None)
  Receive Date: 20100810
  Receipt Date: 20100810
  Transmission Date: 20110219
  Serious: Yes (Hospitalization)
  Sender: FDA-Public Use
  Company Number: None

PATIENT
  Sex: Male
  Weight: 81.9 kg

DRUGS (2)
  1. AZECITIDINE 75MG / M2 QD  S/C [Suspect]
     Indication: ACUTE MYELOID LEUKAEMIA
  2. LENALIDOMIDE 5 MG QD PO [Suspect]

REACTIONS (11)
  - CANDIDIASIS [None]
  - EAR PAIN [None]
  - FATIGUE [None]
  - FEBRILE NEUTROPENIA [None]
  - INFECTION TRANSMISSION VIA PERSONAL CONTACT [None]
  - MYELODYSPLASTIC SYNDROME [None]
  - NASAL CONGESTION [None]
  - NIGHT SWEATS [None]
  - OTITIS MEDIA ACUTE [None]
  - STOMATITIS [None]
  - UPPER RESPIRATORY TRACT INFECTION [None]
